FAERS Safety Report 26041640 (Version 2)
Quarter: 2025Q4

REPORT INFORMATION
  Report Type: Spontaneous
  Country: JP (occurrence: JP)
  Receive Date: 20251113
  Receipt Date: 20251120
  Transmission Date: 20260119
  Serious: Yes (Hospitalization, Other)
  Sender: ALEXION PHARMACEUTICALS
  Company Number: JP-AstraZeneca-CH-00987977A

PATIENT
  Age: 79 Year
  Sex: Female
  Weight: 46.8 kg

DRUGS (9)
  1. CRESTOR [Suspect]
     Active Substance: ROSUVASTATIN CALCIUM
     Indication: Dyslipidaemia
  2. PIRMENOL HYDROCHLORIDE [Suspect]
     Active Substance: PIRMENOL HYDROCHLORIDE
     Dosage: 2 TABLETS DIVIDED TWO TIMES A DAY, AFTER BREAKFAST AND DINNER
     Route: 065
  3. APIXABAN [Suspect]
     Active Substance: APIXABAN
     Dosage: 2 TABLETS DIVIDED TWO TIMES A DAY, AFTER BREAKFAST AND DINNER
     Route: 065
  4. AMLODIPINE [Suspect]
     Active Substance: AMLODIPINE BESYLATE
     Dosage: 2 TABLETS  IN 1 DIVIDED DOSE, AFTER BREAKFAST
     Route: 065
  5. FERROUS CITRATE [Concomitant]
     Active Substance: FERROUS CITRATE
     Route: 065
  6. MAGNESIUM OXIDE [Suspect]
     Active Substance: MAGNESIUM OXIDE
     Dosage: 2 TABLETS DIVIDED TWO TIMES A DAY, AFTER MORNING AND EVENING
     Route: 065
  7. LEMBOREXANT [Suspect]
     Active Substance: LEMBOREXANT
     Dosage: 1 TABLET IN 1 DIVIDED DOSE, BEFORE BEDTIME
     Route: 065
  8. REBAMIPIDE [Suspect]
     Active Substance: REBAMIPIDE
     Dosage: 3 TABLETS DIVIDED THREE TIMES A DAY, AFTER EACH MEAL
     Route: 065
  9. FAMOTIDINE [Suspect]
     Active Substance: FAMOTIDINE
     Dosage: 1 TABLET IN 1 DIVIDED DOSE, AFTER BREAKFAST
     Route: 065

REACTIONS (10)
  - Electrocardiogram QT prolonged [Recovered/Resolved]
  - Normocytic anaemia [Unknown]
  - Hypokalaemia [Unknown]
  - Renal impairment [Unknown]
  - Torsade de pointes [Unknown]
  - Cardio-respiratory arrest [Unknown]
  - Hypomagnesaemia [Unknown]
  - Dehydration [Unknown]
  - Metabolic alkalosis [Unknown]
  - Electrolyte imbalance [Unknown]
